FAERS Safety Report 8857188 (Version 1)
Quarter: 2012Q4

REPORT INFORMATION
  Report Type: 
  Country: DE (occurrence: DE)
  Receive Date: 20121024
  Receipt Date: 20121024
  Transmission Date: 20130627
  Serious: Yes (Congenital Anomaly)
  Sender: FDA-Public Use
  Company Number: DE-ARROW-2012-17906

PATIENT
  Sex: Female
  Weight: 1.69 kg

DRUGS (6)
  1. METFORMIN HYDROCHLORIDE [Suspect]
     Indication: TYPE 2 DIABETES MELLITUS
     Dosage: UNK
     Route: 064
     Dates: start: 20090709, end: 20100126
  2. RAMIPRIL (UNKNOWN) [Suspect]
     Indication: HYPERTENSION
     Dosage: UNK
     Route: 064
     Dates: start: 20090709, end: 20100126
  3. METOPROLOL [Concomitant]
     Indication: HYPERTENSION
     Dosage: UNK
     Route: 064
     Dates: start: 20090709, end: 20100126
  4. DOPEGYT [Concomitant]
     Indication: HYPERTENSION
     Dosage: 750 [mg/d (3x250)
     Route: 064
     Dates: start: 20100126, end: 20100210
  5. NOVORAPID [Concomitant]
     Indication: TYPE 2 DIABETES MELLITUS
     Dosage: 52 [IE/d ]
     Route: 064
     Dates: start: 20100126, end: 20100210
  6. PROTAPHANE [Concomitant]
     Indication: TYPE 2 DIABETES MELLITUS
     Dosage: 30 [IE/d ]
     Route: 064
     Dates: start: 20100126, end: 20100210

REACTIONS (8)
  - Congenital aortic valve stenosis [Recovered/Resolved with Sequelae]
  - Mitral valve incompetence [Not Recovered/Not Resolved]
  - Patent ductus arteriosus [Recovered/Resolved]
  - Atrial septal defect [Not Recovered/Not Resolved]
  - Bicuspid aortic valve [Not Recovered/Not Resolved]
  - Neonatal respiratory distress syndrome [Recovered/Resolved]
  - Pulmonary hypertension [None]
  - Maternal drugs affecting foetus [None]
